FAERS Safety Report 15185835 (Version 2)
Quarter: 2018Q3

REPORT INFORMATION
  Report Type: Spontaneous
  Country: US (occurrence: US)
  Receive Date: 20180723
  Receipt Date: 20180809
  Transmission Date: 20181010
  Serious: No
  Sender: FDA-Public Use
  Company Number: US-BAUSCH-BL-2018-000561

PATIENT
  Age: 37 Year
  Sex: Male
  Weight: 99.88 kg

DRUGS (1)
  1. OPCON?A [Suspect]
     Active Substance: NAPHAZOLINE HYDROCHLORIDE\PHENIRAMINE MALEATE
     Indication: EYE ALLERGY
     Dosage: AS NEEDED (FOR SOME TIME)
     Route: 031
     Dates: end: 20180105

REACTIONS (3)
  - Eye pain [Not Recovered/Not Resolved]
  - Superficial injury of eye [Unknown]
  - Product dropper issue [Unknown]

NARRATIVE: CASE EVENT DATE: 20180105
